FAERS Safety Report 23756011 (Version 1)
Quarter: 2024Q2

REPORT INFORMATION
  Report Type: Spontaneous
  Country: US (occurrence: US)
  Receive Date: 20240418
  Receipt Date: 20240418
  Transmission Date: 20240716
  Serious: No
  Sender: FDA-Public Use
  Company Number: US-ABBVIE-5720927

PATIENT
  Age: 84 Year
  Sex: Male

DRUGS (3)
  1. LUPRON DEPOT [Suspect]
     Active Substance: LEUPROLIDE ACETATE
     Indication: Prostate cancer
     Route: 065
     Dates: start: 202204
  2. XTANDI [Suspect]
     Active Substance: ENZALUTAMIDE
     Indication: Prostate cancer
     Dosage: STRENGTH 40 MG?40 MG X 4 TABLETS
     Route: 048
     Dates: start: 20220501, end: 2023
  3. XTANDI [Suspect]
     Active Substance: ENZALUTAMIDE
     Indication: Prostate cancer
     Dosage: (40 MG X 2 TABLETS)?STRENGTH: 40 MG
     Route: 048
     Dates: start: 20230101

REACTIONS (13)
  - Back pain [Unknown]
  - Condition aggravated [Unknown]
  - Allergic respiratory symptom [Unknown]
  - Pruritus allergic [Unknown]
  - Nasopharyngitis [Unknown]
  - Influenza [Unknown]
  - Sinusitis [Unknown]
  - Rhinitis [Unknown]
  - Blood glucose increased [Recovering/Resolving]
  - Allergy to animal [Unknown]
  - Dust allergy [Unknown]
  - Hypersensitivity [Unknown]
  - Glycosylated haemoglobin increased [Recovering/Resolving]

NARRATIVE: CASE EVENT DATE: 20221020
